FAERS Safety Report 8969624 (Version 2)
Quarter: 2012Q4

REPORT INFORMATION
  Report Type: 
  Country: JP (occurrence: JP)
  Receive Date: 20121218
  Receipt Date: 20121221
  Transmission Date: 20130627
  Serious: Yes (Other)
  Sender: FDA-Public Use
  Company Number: JP-009507513-2012SP001250

PATIENT
  Age: 63 Year
  Sex: Female
  Weight: 53 kg

DRUGS (7)
  1. REBETOL [Suspect]
     Indication: CHRONIC HEPATITIS C
     Dosage: 600 mg, qd
     Route: 048
     Dates: start: 20111212, end: 20111226
  2. REBETOL [Suspect]
     Dosage: 200 mg, QD
     Route: 048
     Dates: start: 20120110, end: 20120206
  3. REBETOL [Suspect]
     Dosage: 400 mg, QD
     Route: 048
     Dates: start: 20120306
  4. PEGINTRON [Suspect]
     Indication: CHRONIC HEPATITIS C
     Dosage: 1.5 Microgram per kilogram, qw
     Route: 058
     Dates: start: 20111212
  5. TELAVIC [Suspect]
     Indication: CHRONIC HEPATITIS C
     Dosage: 2250 mg, QD
     Route: 048
     Dates: start: 20111212, end: 20111218
  6. TELAVIC [Suspect]
     Dosage: 1500 mg, qd
     Route: 048
     Dates: start: 20111219, end: 20111222
  7. TELAVIC [Suspect]
     Dosage: 750 mg, QD
     Route: 048
     Dates: start: 20120117, end: 20120206

REACTIONS (2)
  - Renal disorder [Recovered/Resolved]
  - Anaemia [Recovered/Resolved]
